FAERS Safety Report 14079241 (Version 2)
Quarter: 2017Q4

REPORT INFORMATION
  Report Type: Report from Study
  Country: None (occurrence: NZ)
  Receive Date: 20171012
  Receipt Date: 20171212
  Transmission Date: 20180321
  Serious: Yes (Hospitalization, Other)
  Sender: FDA-Public Use
  Company Number: NZ-ABBVIE-17K-118-2122042-00

PATIENT
  Sex: Female

DRUGS (2)
  1. TRAMADOL. [Concomitant]
     Active Substance: TRAMADOL
     Indication: PRODUCT USED FOR UNKNOWN INDICATION
  2. HUMIRA [Suspect]
     Active Substance: ADALIMUMAB
     Indication: PSORIASIS
     Route: 058
     Dates: start: 20170317

REACTIONS (15)
  - Pancreatitis chronic [Not Recovered/Not Resolved]
  - Gastrointestinal disorder [Unknown]
  - Post procedural infection [Unknown]
  - Dehydration [Unknown]
  - Pain [Unknown]
  - Nausea [Unknown]
  - Malaise [Unknown]
  - Influenza [Not Recovered/Not Resolved]
  - Antisocial behaviour [Not Recovered/Not Resolved]
  - Decreased activity [Unknown]
  - Weight decreased [Unknown]
  - Pancreatolithiasis [Unknown]
  - Depressed mood [Unknown]
  - Psoriasis [Unknown]
  - Depressed mood [Not Recovered/Not Resolved]

NARRATIVE: CASE EVENT DATE: 2017
